FAERS Safety Report 20381199 (Version 1)
Quarter: 2022Q1

REPORT INFORMATION
  Report Type: Spontaneous
  Country: US (occurrence: US)
  Receive Date: 20220127
  Receipt Date: 20220127
  Transmission Date: 20220423
  Serious: No
  Sender: FDA-Public Use
  Company Number: US-AMGEN-USASP2022011567

PATIENT
  Age: 62 Year
  Sex: Female

DRUGS (5)
  1. AIMOVIG [Suspect]
     Active Substance: ERENUMAB-AOOE
     Indication: Migraine with aura
     Dosage: 70 MILLIGRAM, QMO
     Route: 065
     Dates: start: 202112
  2. BOTOX [Concomitant]
     Active Substance: ONABOTULINUMTOXINA
     Indication: Headache
     Dosage: UNK
     Route: 065
  3. SUMATRIPTAN [Concomitant]
     Active Substance: SUMATRIPTAN
     Indication: Migraine
     Route: 065
  4. ASCORBIC ACID\BIOFLAVONOIDS [Concomitant]
     Active Substance: ASCORBIC ACID\BIOFLAVONOIDS
     Dosage: UNK
     Route: 065
  5. ZINC [Concomitant]
     Active Substance: ZINC

REACTIONS (8)
  - Therapy partial responder [Unknown]
  - SARS-CoV-2 test positive [Unknown]
  - Migraine [Unknown]
  - Fatigue [Recovered/Resolved]
  - Influenza [Recovering/Resolving]
  - Sinusitis [Unknown]
  - Stress [Unknown]
  - Constipation [Unknown]
